FAERS Safety Report 5126940-6 (Version None)
Quarter: 2006Q4

REPORT INFORMATION
  Report Type: 
  Country: None (occurrence: None)
  Receive Date: 20061010
  Receipt Date: 20060927
  Transmission Date: 20070319
  Serious: Yes (Death, Other)
  Sender: FDA-Public Use
  Company Number: CZ-2006-028920

PATIENT
  Age: 78 Year
  Sex: Male

DRUGS (13)
  1. SOTALOL HYDROCHLORIDE [Suspect]
     Indication: TACHYARRHYTHMIA
     Dosage: 40 MG, 1 DOSE, INTRAVENOUS
     Route: 042
  2. AMIODARONE HCL [Suspect]
     Indication: TACHYARRHYTHMIA
     Dosage: SEE IMAGE
     Route: 042
  3. PROPAFENONE HCL [Concomitant]
  4. ATENOLOL [Concomitant]
  5. WARFARIN SODIUM [Concomitant]
  6. DIURETICS [Concomitant]
  7. DIGOXIN [Concomitant]
  8. ISOSORBIDE DINITRATE [Concomitant]
  9. CORTICOSTEROIDS [Concomitant]
  10. ANTIBIOTICS [Concomitant]
  11. VERAPAMIL [Concomitant]
  12. ESMOLOL (ESMOLOL) [Concomitant]
  13. BETA BLOCKING AGENTS [Concomitant]

REACTIONS (20)
  - ATELECTASIS [None]
  - ATRIAL FIBRILLATION [None]
  - BRONCHOSPASM [None]
  - DILATATION ATRIAL [None]
  - DISEASE PROGRESSION [None]
  - DRUG INEFFECTIVE [None]
  - ELECTROCARDIOGRAM QT CORRECTED INTERVAL PROLONGED [None]
  - INFLAMMATION [None]
  - LEFT VENTRICULAR FAILURE [None]
  - MITRAL VALVE INCOMPETENCE [None]
  - PARKINSONISM [None]
  - PERICARDIAL EFFUSION [None]
  - PLEURAL EFFUSION [None]
  - PNEUMONIA [None]
  - PULMONARY HYPERTENSION [None]
  - PULMONARY OEDEMA [None]
  - RESPIRATORY TRACT INFECTION [None]
  - SEPTIC SHOCK [None]
  - THERAPY NON-RESPONDER [None]
  - TRICUSPID VALVE INCOMPETENCE [None]
